FAERS Safety Report 6706976-1 (Version None)
Quarter: 2010Q2

REPORT INFORMATION
  Report Type: 
  Country: None (occurrence: None)
  Receive Date: 20100503
  Receipt Date: 20100423
  Transmission Date: 20101027
  Serious: Yes (Other)
  Sender: FDA-Public Use
  Company Number: GXKR2010IT04652

PATIENT
  Sex: Male

DRUGS (1)
  1. RISPERIDONE [Suspect]
     Route: 065

REACTIONS (4)
  - DYSKINESIA [None]
  - DYSTONIA [None]
  - MUSCULOSKELETAL STIFFNESS [None]
  - SPEECH DISORDER DEVELOPMENTAL [None]
